FAERS Safety Report 11401432 (Version 1)
Quarter: 2015Q3

REPORT INFORMATION
  Report Type: Report from Study
  Country: US (occurrence: US)
  Receive Date: 20150820
  Receipt Date: 20150820
  Transmission Date: 20151125
  Serious: No
  Sender: FDA-Public Use
  Company Number: PHEH2015US015587

PATIENT
  Sex: Male

DRUGS (1)
  1. EXTAVIA [Suspect]
     Active Substance: INTERFERON BETA-1B
     Indication: MULTIPLE SCLEROSIS
     Dosage: 0.25 MG (1 ML) (INJECT HALF DOSE (0.5 ML) FOR THE FIRST MONTH), QOD
     Route: 058
     Dates: start: 20150512, end: 201506

REACTIONS (1)
  - Drug ineffective [Unknown]
